FAERS Safety Report 4816949-1 (Version None)
Quarter: 2005Q4

REPORT INFORMATION
  Report Type: 
  Country: None (occurrence: None)
  Receive Date: 20051031
  Receipt Date: 20051031
  Transmission Date: 20060501
  Serious: Yes (Hospitalization)
  Sender: FDA-Public Use
  Company Number: None

PATIENT
  Age: 79 Year
  Sex: Male
  Weight: 106.5953 kg

DRUGS (12)
  1. FUROSEMIDE [Suspect]
     Indication: OEDEMA
     Dosage: INCREASE 40 MG BID
     Dates: start: 20050623, end: 20050706
  2. METOLAZONE [Suspect]
     Indication: OEDEMA
     Dosage: 2.5 MG DAILY
     Dates: start: 20050126, end: 20050706
  3. HYDROCODONE 5/ ACETAMINOPHEN [Concomitant]
  4. TEMAZEPAM [Concomitant]
  5. ISOSORBIDE MONITRATE [Concomitant]
  6. NITROGLYCERIN [Concomitant]
  7. METOLAZONE [Concomitant]
  8. FUROSEMIDE [Concomitant]
  9. ENALAPRIL MALEATE [Concomitant]
  10. OMEPRAZOLE [Concomitant]
  11. CETYLPYRDINIUM 0.07%/MENTHOL [Concomitant]
  12. FORMOTEROL FUMARATE INH [Concomitant]

REACTIONS (2)
  - ASTHENIA [None]
  - DIZZINESS [None]
